FAERS Safety Report 4271861-4 (Version None)
Quarter: 2004Q1

REPORT INFORMATION
  Report Type: 
  Country: None (occurrence: None)
  Receive Date: 20040113
  Receipt Date: 20031219
  Transmission Date: 20041129
  Serious: Yes (Other)
  Sender: FDA-Public Use
  Company Number: JP-JNJFOC-20031204399

PATIENT

DRUGS (1)
  1. LEUSTATIN [Suspect]
     Indication: BONE MARROW DISORDER

REACTIONS (1)
  - GRAFT VERSUS HOST DISEASE [None]
